FAERS Safety Report 24991895 (Version 1)
Quarter: 2025Q1

REPORT INFORMATION
  Report Type: Spontaneous
  Country: US (occurrence: US)
  Receive Date: 20250220
  Receipt Date: 20250220
  Transmission Date: 20250409
  Serious: No
  Sender: INSUD PHARMA
  Company Number: US-INSUD PHARMA-2502US00922

PATIENT

DRUGS (1)
  1. SLYND [Suspect]
     Active Substance: DROSPIRENONE
     Indication: Dysmenorrhoea
     Route: 048

REACTIONS (2)
  - Amenorrhoea [Not Recovered/Not Resolved]
  - Product use in unapproved indication [Unknown]
